FAERS Safety Report 6081562-8 (Version None)
Quarter: 2009Q1

REPORT INFORMATION
  Report Type: 
  Country: None (occurrence: None)
  Receive Date: 20090213
  Receipt Date: 20090205
  Transmission Date: 20090719
  Serious: Yes (Death, Hospitalization)
  Sender: FDA-Public Use
  Company Number: BAYER CASE ID:200831956GPV

PATIENT
  Age: 66 Year
  Sex: Male

DRUGS (6)
  1. FLUDARA [Suspect]
     Indication: CHRONIC LYMPHOCYTIC LEUKAEMIA
     Dosage: ORAL; 40 MG/M2 ORAL
     Route: 048
     Dates: start: 20080204, end: 20080206
  2. FLUDARA [Suspect]
     Indication: CHRONIC LYMPHOCYTIC LEUKAEMIA
     Dosage: ORAL; 40 MG/M2 ORAL
     Route: 048
     Dates: start: 20080630, end: 20080702
  3. CAMPATH [Suspect]
     Indication: CHRONIC LYMPHOCYTIC LEUKAEMIA
     Dosage: SUBCUTANEOUS; 30 MG SUBCUTANEOUS
     Route: 058
     Dates: start: 20080204, end: 20080206
  4. CAMPATH [Suspect]
     Indication: CHRONIC LYMPHOCYTIC LEUKAEMIA
     Dosage: SUBCUTANEOUS; 30 MG SUBCUTANEOUS
     Route: 058
     Dates: start: 20080630, end: 20080702
  5. CYCLOPHOSPHAMIDE [Suspect]
     Indication: CHRONIC LYMPHOCYTIC LEUKAEMIA
     Dosage: ORAL; 500 MG ORAL
     Route: 048
     Dates: start: 20080204, end: 20080206
  6. CYCLOPHOSPHAMIDE [Suspect]
     Indication: CHRONIC LYMPHOCYTIC LEUKAEMIA
     Dosage: ORAL; 500 MG ORAL
     Route: 048
     Dates: start: 20080630, end: 20080702

REACTIONS (12)
  - ANOREXIA [None]
  - CARDIAC FAILURE [None]
  - CARDIO-RESPIRATORY ARREST [None]
  - DIARRHOEA [None]
  - FEBRILE NEUTROPENIA [None]
  - GENERAL PHYSICAL HEALTH DETERIORATION [None]
  - LEUKOPENIA [None]
  - PNEUMONIA [None]
  - SINUS TACHYCARDIA [None]
  - SYNCOPE [None]
  - THROMBOCYTOPENIA [None]
  - WEIGHT DECREASED [None]
